FAERS Safety Report 9217241 (Version 2)
Quarter: 2013Q2

REPORT INFORMATION
  Report Type: Spontaneous
  Country: US (occurrence: US)
  Receive Date: 20130408
  Receipt Date: 20130412
  Transmission Date: 20140414
  Serious: No
  Sender: FDA-Public Use
  Company Number: US-PFIZER INC-2013108747

PATIENT
  Age: 56 Year
  Sex: Female
  Weight: 61.22 kg

DRUGS (1)
  1. RELPAX [Suspect]
     Indication: MIGRAINE
     Dosage: 40 MG, 1X/DAY
     Route: 048
     Dates: start: 20121119, end: 20121120

REACTIONS (1)
  - Rash [Recovered/Resolved]
